FAERS Safety Report 5612860-7 (Version None)
Quarter: 2008Q1

REPORT INFORMATION
  Report Type: 
  Country: None (occurrence: None)
  Receive Date: 20080204
  Receipt Date: 20080125
  Transmission Date: 20080703
  Serious: Yes (Hospitalization)
  Sender: FDA-Public Use
  Company Number: FR-PFIZER INC-2006005938

PATIENT
  Age: 58 Year
  Sex: Male

DRUGS (16)
  1. NEURONTIN [Suspect]
     Indication: ILL-DEFINED DISORDER
     Dosage: DAILY DOSE:2400MG-FREQ:DAILY
     Route: 048
  2. ATARAX [Suspect]
     Indication: ILL-DEFINED DISORDER
     Dosage: DAILY DOSE:400MG-FREQ:DAILY
     Route: 048
  3. MORPHINE [Suspect]
     Indication: ILL-DEFINED DISORDER
     Dosage: DAILY DOSE:140MG-FREQ:DAILY
     Route: 048
  4. TRAMADOL HCL [Suspect]
     Indication: ILL-DEFINED DISORDER
     Dosage: DAILY DOSE:400MG-FREQ:DAILY
     Route: 048
  5. NOCTRAN 10 [Suspect]
     Indication: ILL-DEFINED DISORDER
     Dosage: TEXT:2 ^DF^-FREQ:DAILY
     Route: 048
  6. IMOVANE [Suspect]
     Route: 065
  7. RISPERDAL [Concomitant]
     Indication: ILL-DEFINED DISORDER
     Dosage: DAILY DOSE:4MG-FREQ:DAILY
     Route: 065
  8. NORSET [Concomitant]
     Route: 065
  9. DEPAMIDE [Concomitant]
     Route: 065
  10. ALDACTONE [Concomitant]
     Route: 065
  11. DIFFU K [Concomitant]
     Route: 065
  12. BURINEX [Concomitant]
     Route: 065
  13. TAHOR [Concomitant]
     Route: 065
  14. ALLOPURINOL [Concomitant]
     Route: 065
  15. ACETAMINOPHEN [Concomitant]
     Route: 065
  16. EUPRESSYL [Concomitant]
     Route: 065

REACTIONS (3)
  - DRUG ABUSE [None]
  - DRUG DEPENDENCE [None]
  - DRUG TOXICITY [None]
